FAERS Safety Report 10402356 (Version 2)
Quarter: 2014Q3

REPORT INFORMATION
  Report Type: Spontaneous
  Country: FR (occurrence: None)
  Receive Date: 20140820
  Receipt Date: 20140820
  Transmission Date: 20150326
  Serious: Yes (Hospitalization, Other)
  Sender: FDA-Public Use
  Company Number: ADR-2014-01450

PATIENT
  Age: 50 Year
  Sex: Female

DRUGS (2)
  1. SINTROM [Suspect]
     Active Substance: ACENOCOUMAROL
     Indication: CARDIAC VALVE PROSTHESIS USER
     Dates: start: 1982, end: 20140703
  2. LIORESAL [Suspect]
     Active Substance: BACLOFEN
     Indication: ALCOHOLISM
     Dates: start: 20140622, end: 20140703

REACTIONS (1)
  - International normalised ratio increased [None]

NARRATIVE: CASE EVENT DATE: 20140703
